FAERS Safety Report 19271250 (Version 2)
Quarter: 2021Q3

REPORT INFORMATION
  Report Type: Report from Study
  Country: US (occurrence: US)
  Receive Date: 20210518
  Receipt Date: 20210706
  Transmission Date: 20211014
  Serious: No
  Sender: FDA-Public Use
  Company Number: US-SUNOVION-2021SUN001634

PATIENT

DRUGS (2)
  1. KYNMOBI [Suspect]
     Active Substance: APOMORPHINE HYDROCHLORIDE
     Dosage: 10 MG
     Route: 060
     Dates: start: 20210607
  2. KYNMOBI [Suspect]
     Active Substance: APOMORPHINE HYDROCHLORIDE
     Dosage: 10 MG
     Route: 060
     Dates: start: 20210428

REACTIONS (6)
  - Asthenia [Unknown]
  - Limb discomfort [Unknown]
  - Agitation [Unknown]
  - Dizziness [Unknown]
  - Somnolence [Unknown]
  - Yawning [Unknown]

NARRATIVE: CASE EVENT DATE: 20210428
